FAERS Safety Report 15496168 (Version 1)
Quarter: 2018Q4

REPORT INFORMATION
  Report Type: Spontaneous
  Country: US (occurrence: US)
  Receive Date: 20181012
  Receipt Date: 20181012
  Transmission Date: 20190205
  Serious: No
  Sender: FDA-Public Use
  Company Number: US-MAYNE PHARMA-2018MYN000305

PATIENT

DRUGS (10)
  1. DONEPEZIL. [Concomitant]
     Active Substance: DONEPEZIL
     Indication: DEMENTIA
  2. MEMANTINE. [Concomitant]
     Active Substance: MEMANTINE
     Indication: DEMENTIA
  3. FENTANYL. [Suspect]
     Active Substance: FENTANYL
     Indication: NECK PAIN
     Dosage: UNK
  4. PREDNISONE. [Concomitant]
     Active Substance: PREDNISONE
     Indication: CROHN^S DISEASE
  5. DONEPEZIL. [Concomitant]
     Active Substance: DONEPEZIL
     Indication: MEMORY IMPAIRMENT
  6. MEMANTINE. [Concomitant]
     Active Substance: MEMANTINE
     Indication: MEMORY IMPAIRMENT
  7. MIRTAZAPINE. [Concomitant]
     Active Substance: MIRTAZAPINE
     Indication: ANXIETY
  8. PRIMIDONE. [Concomitant]
     Active Substance: PRIMIDONE
     Indication: EPILEPSY
  9. LISINOPRIL. [Concomitant]
     Active Substance: LISINOPRIL
     Indication: HYPERTENSION
  10. MIRTAZAPINE. [Concomitant]
     Active Substance: MIRTAZAPINE
     Indication: INSOMNIA

REACTIONS (3)
  - Headache [Recovering/Resolving]
  - Chills [Unknown]
  - Withdrawal syndrome [Unknown]

NARRATIVE: CASE EVENT DATE: 2017
